FAERS Safety Report 7564266-1 (Version None)
Quarter: 2011Q2

REPORT INFORMATION
  Report Type: 
  Country: None (occurrence: None)
  Receive Date: 20110622
  Receipt Date: 20110302
  Transmission Date: 20111010
  Serious: No
  Sender: FDA-Public Use
  Company Number: US-ALLERGAN-1102976US

PATIENT
  Age: 81 Year
  Sex: Female

DRUGS (3)
  1. LUMIGAN [Suspect]
     Indication: GLAUCOMA
  2. BETAGAN [Concomitant]
     Indication: ABNORMAL SENSATION IN EYE
     Dosage: 1 GTT, QD
     Route: 047
  3. LUMIGAN [Suspect]
     Indication: ABNORMAL SENSATION IN EYE
     Dosage: 1 GTT, QPM
     Route: 047
     Dates: start: 20110221, end: 20110228

REACTIONS (1)
  - CONSTIPATION [None]
